FAERS Safety Report 8996940 (Version 4)
Quarter: 2013Q4

REPORT INFORMATION
  Report Type: Report from Study
  Country: JP (occurrence: JP)
  Receive Date: 20130104
  Receipt Date: 20131022
  Transmission Date: 20140711
  Serious: Yes (Other)
  Sender: FDA-Public Use
  Company Number: JP-TEVA-378922USA

PATIENT
  Age: 62 Year
  Sex: Female
  Weight: 66 kg

DRUGS (14)
  1. BENDAMUSTINE [Suspect]
     Indication: B-CELL LYMPHOMA
     Dosage: DAY 1 AND 2, CYCLE 3
     Route: 042
     Dates: start: 20120913, end: 20120914
  2. BENDAMUSTINE [Suspect]
     Dosage: DAY 1 AND 2, CYCLE 2
     Route: 042
     Dates: start: 20120816, end: 20120817
  3. BENDAMUSTINE [Suspect]
     Dosage: DAY 1 AND 2, CYCLE 1
     Route: 042
     Dates: start: 20120718, end: 20120719
  4. SODIUM RABEPRAZOLE [Concomitant]
     Indication: PROPHYLAXIS
     Dates: start: 20120713
  5. FOLIC ACID [Concomitant]
     Indication: LEUKOPENIA
     Dosage: 15 MILLIGRAM DAILY;
     Dates: start: 20121220, end: 20130627
  6. FOLIC ACID [Concomitant]
     Indication: NEUTROPENIA
  7. ASPIRIN [Concomitant]
     Indication: CHEST PAIN
     Dosage: 100 MILLIGRAM DAILY;
     Dates: start: 20121122
  8. SODIUM GUALENATE HYDRATE [Concomitant]
     Indication: PROPHYLAXIS
     Dates: start: 20121220
  9. AMLODIPINE BESILATE [Concomitant]
     Indication: HYPERTENSION
     Dosage: 2.5 MILLIGRAM DAILY;
     Dates: start: 20121128
  10. LEVOTHYROXINE SODIUM [Concomitant]
     Indication: HYPOTHYROIDISM
     Dosage: 75 MILLIGRAM DAILY;
     Dates: start: 20120704
  11. RITUXIMAB [Concomitant]
     Indication: B-CELL LYMPHOMA
     Dosage: CYCLE 1, DAY 0
     Dates: start: 20120717
  12. RITUXIMAB [Concomitant]
     Dosage: CYCLE 2, DAY1
     Dates: start: 20120816
  13. RITUXIMAB [Concomitant]
     Dosage: CYCLE 3 DAY 1
     Dates: start: 20120913
  14. ISOSORBIDE DINITRATE [Concomitant]
     Dates: start: 20121213

REACTIONS (1)
  - Cytogenetic abnormality [Not Recovered/Not Resolved]
